FAERS Safety Report 15574386 (Version 1)
Quarter: 2018Q4

REPORT INFORMATION
  Report Type: Spontaneous
  Country: US (occurrence: US)
  Receive Date: 20181031
  Receipt Date: 20181031
  Transmission Date: 20190205
  Serious: No
  Sender: FDA-Public Use
  Company Number: None

PATIENT
  Age: 55 Year
  Sex: Female
  Weight: 72 kg

DRUGS (1)
  1. AMITIZA [Suspect]
     Active Substance: LUBIPROSTONE
     Indication: CONSTIPATION
     Dosage: ?          OTHER STRENGTH:MCG;QUANTITY:60 CAPSULE(S);?
     Route: 048
     Dates: start: 20181024, end: 20181031

REACTIONS (4)
  - Mastication disorder [None]
  - Toothache [None]
  - Pain in jaw [None]
  - Chest discomfort [None]

NARRATIVE: CASE EVENT DATE: 20181024
